FAERS Safety Report 19194890 (Version 1)
Quarter: 2021Q2

REPORT INFORMATION
  Report Type: Spontaneous
  Country: CA (occurrence: CA)
  Receive Date: 20210429
  Receipt Date: 20210429
  Transmission Date: 20210717
  Serious: Yes (Hospitalization, Other)
  Sender: FDA-Public Use
  Company Number: CA-TEVA-2021-CA-1904068

PATIENT
  Age: 9 Year
  Sex: Female

DRUGS (2)
  1. PREGABALIN. [Suspect]
     Active Substance: PREGABALIN
     Indication: NEURALGIA
     Dosage: 25 MILLIGRAM DAILY;
     Route: 065
  2. BACLOFEN. [Suspect]
     Active Substance: BACLOFEN
     Indication: MUSCLE SPASTICITY
     Dosage: 2.5 MILLIGRAM DAILY;
     Route: 065

REACTIONS (4)
  - Dyspnoea [Recovered/Resolved]
  - Upper airway obstruction [Recovered/Resolved]
  - Unresponsive to stimuli [Recovered/Resolved]
  - Depressed level of consciousness [Recovered/Resolved]
